FAERS Safety Report 17778274 (Version 2)
Quarter: 2020Q2

REPORT INFORMATION
  Report Type: Spontaneous
  Country: US (occurrence: US)
  Receive Date: 20200513
  Receipt Date: 20200526
  Transmission Date: 20200714
  Serious: Yes (Life-Threatening, Hospitalization)
  Sender: FDA-Public Use
  Company Number: US-TEVA-2020-US-1234136

PATIENT
  Age: 76 Year
  Sex: Female

DRUGS (11)
  1. METOPROLOL. [Suspect]
     Active Substance: METOPROLOL
     Dosage: EXTENDED RELEASE
     Route: 065
  2. DULOXETINE. [Suspect]
     Active Substance: DULOXETINE
     Route: 065
  3. FAT EMULSION NOS [Suspect]
     Active Substance: EGG PHOSPHOLIPIDS\SAFFLOWER OIL\SOYBEAN OIL
     Indication: INTENTIONAL OVERDOSE
     Dosage: BOLUS OF 1 ML/KG OVER 1 MIN, FURTHER CONTINUED AT A RATE OF 0.25 ML/KG/MIN FOR 3.5 H FOR A TOTAL ...
     Route: 040
  4. ENOXAPARIN [Concomitant]
     Active Substance: ENOXAPARIN
     Indication: THROMBOSIS PROPHYLAXIS
     Route: 065
  5. NOREPINEPHRINE. [Concomitant]
     Active Substance: NOREPINEPHRINE
     Route: 065
  6. EPINEPHRINE. [Concomitant]
     Active Substance: EPINEPHRINE
     Route: 065
  7. LOSARTAN. [Suspect]
     Active Substance: LOSARTAN
     Route: 065
  8. FAT EMULSION NOS [Suspect]
     Active Substance: EGG PHOSPHOLIPIDS\SAFFLOWER OIL\SOYBEAN OIL
     Dosage: 0.25 ML/KG/MIN FOR 3.5 H FOR A TOTAL DOSE OF ABOUT 4770 ML
     Route: 040
  9. GLUCAGON. [Concomitant]
     Active Substance: GLUCAGON
     Route: 065
  10. DOPAMINE [Concomitant]
     Active Substance: DOPAMINE HYDROCHLORIDE
     Route: 065
  11. INSULIN [Concomitant]
     Active Substance: INSULIN NOS
     Dosage: HIGH-DOSE
     Route: 065

REACTIONS (7)
  - Bradycardia [Unknown]
  - Pulmonary embolism [Unknown]
  - Hypothermia [Unknown]
  - Device occlusion [Unknown]
  - Intentional overdose [Unknown]
  - Hypotension [Unknown]
  - Fat embolism [Unknown]
